FAERS Safety Report 25527655 (Version 1)
Quarter: 2025Q3

REPORT INFORMATION
  Report Type: Spontaneous
  Country: US (occurrence: US)
  Receive Date: 20250708
  Receipt Date: 20250708
  Transmission Date: 20251020
  Serious: Yes (Death, Hospitalization)
  Sender: Unknown Manufacturer
  Company Number: US-SHIELD THERAPEUTICS-US-STX-25-00286

PATIENT
  Age: 85 Year
  Sex: Female

DRUGS (1)
  1. ACCRUFER [Suspect]
     Active Substance: FERRIC MALTOL
     Indication: Iron deficiency
     Dosage: 30 MILLIGRAM, QD
     Route: 048
     Dates: start: 20240904, end: 20250608

REACTIONS (3)
  - Death [Fatal]
  - Hospice care [Unknown]
  - Inappropriate schedule of product administration [Unknown]
